FAERS Safety Report 20371717 (Version 1)
Quarter: 2022Q1

REPORT INFORMATION
  Report Type: Spontaneous
  Country: US (occurrence: None)
  Receive Date: 20220124
  Receipt Date: 20220124
  Transmission Date: 20220423
  Serious: No
  Sender: FDA-Public Use
  Company Number: None

PATIENT
  Age: 40 Year
  Sex: Female

DRUGS (1)
  1. CLOZAPINE [Suspect]
     Active Substance: CLOZAPINE

REACTIONS (7)
  - Cardiac arrest [None]
  - Shock [None]
  - Hypoxia [None]
  - Device computer issue [None]
  - Drug titration error [None]
  - Therapy interrupted [None]
  - Drug monitoring procedure not performed [None]
